FAERS Safety Report 13698388 (Version 2)
Quarter: 2017Q3

REPORT INFORMATION
  Report Type: Spontaneous
  Country: US (occurrence: US)
  Receive Date: 20170628
  Receipt Date: 20170711
  Transmission Date: 20171127
  Serious: Yes (Other)
  Sender: FDA-Public Use
  Company Number: US-GILEAD-2017-0279712

PATIENT
  Age: 62 Year
  Sex: Female
  Weight: 58 kg

DRUGS (3)
  1. RETIN-A [Concomitant]
     Active Substance: TRETINOIN
     Dosage: UNK
     Dates: start: 20170411
  2. HARVONI [Suspect]
     Active Substance: LEDIPASVIR\SOFOSBUVIR
     Indication: HEPATITIS
     Dosage: UNK
     Route: 065
     Dates: start: 201509, end: 201512
  3. AZELEX [Concomitant]
     Active Substance: AZELAIC ACID
     Dosage: UNK
     Dates: start: 20170104

REACTIONS (1)
  - Intraductal proliferative breast lesion [Not Recovered/Not Resolved]

NARRATIVE: CASE EVENT DATE: 20170608
